FAERS Safety Report 16068506 (Version 1)
Quarter: 2019Q1

REPORT INFORMATION
  Report Type: Report from Study
  Country: IT (occurrence: IT)
  Receive Date: 20190313
  Receipt Date: 20190313
  Transmission Date: 20190418
  Serious: Yes (Hospitalization)
  Sender: FDA-Public Use
  Company Number: IT-MYLANLABS-2019M1023211

PATIENT
  Age: 77 Year
  Sex: Female

DRUGS (5)
  1. PANTOPRAZOLE [Concomitant]
     Active Substance: PANTOPRAZOLE
     Route: 048
  2. TICLOPIDINE [Concomitant]
     Active Substance: TICLOPIDINE
     Dosage: 1 DOSAGE FORM
     Route: 048
  3. HYDROCHLOROTHIAZIDE/IRBESARTAN [Suspect]
     Active Substance: HYDROCHLOROTHIAZIDE\IRBESARTAN
     Indication: HYPERTENSION
     Dosage: 1 DOSAGE FORM, QD
     Route: 048
     Dates: start: 20180704, end: 20180704
  4. PROPAFENONE. [Concomitant]
     Active Substance: PROPAFENONE
     Route: 048
  5. FEMARA [Concomitant]
     Active Substance: LETROZOLE
     Dosage: 1 DOSAGE FORM
     Route: 048

REACTIONS (3)
  - Pallor [Recovering/Resolving]
  - Asthenia [Recovering/Resolving]
  - Hypotension [Recovering/Resolving]

NARRATIVE: CASE EVENT DATE: 20180704
